FAERS Safety Report 23542212 (Version 1)
Quarter: 2024Q1

REPORT INFORMATION
  Report Type: Spontaneous
  Country: US (occurrence: None)
  Receive Date: 20240220
  Receipt Date: 20240220
  Transmission Date: 20240410
  Serious: No
  Sender: FDA-Public Use
  Company Number: US-ROCHE-3445386

PATIENT
  Sex: Male

DRUGS (2)
  1. ROZLYTREK [Suspect]
     Active Substance: ENTRECTINIB
     Indication: Non-small cell lung cancer metastatic
     Dosage: REDUCED AT WEEK 4 TO 400 MG PER DAY AND IT IS NOW  WEEK 2. ;ONGOING: YES
     Route: 048
  2. ROZLYTREK [Suspect]
     Active Substance: ENTRECTINIB
     Dosage: STARTED ABOUT 5 WEEKS AGO FOR 3 WEEKS. ;ONGOING: NO
     Route: 048

REACTIONS (2)
  - Asthenia [Unknown]
  - Dizziness [Unknown]
